FAERS Safety Report 4463232-2 (Version None)
Quarter: 2004Q3

REPORT INFORMATION
  Report Type: 
  Country: None (occurrence: None)
  Receive Date: 20040930
  Receipt Date: 20040405
  Transmission Date: 20050211
  Serious: No
  Sender: FDA-Public Use
  Company Number: US-GLAXOSMITHKLINE-A0506106A

PATIENT
  Age: 42 Year
  Sex: Female

DRUGS (8)
  1. WELLBUTRIN XL [Suspect]
     Route: 048
     Dates: start: 20040220
  2. WELLBUTRIN [Suspect]
     Dosage: 150MG PER DAY
     Dates: start: 20020101
  3. PAXIL CR [Suspect]
     Indication: DEPRESSION
     Dosage: 12.5MG SEE DOSAGE TEXT
     Dates: start: 20031229
  4. XANAX [Suspect]
     Indication: PANIC ATTACK
  5. LEXAPRO [Suspect]
     Indication: DRUG USE FOR UNKNOWN INDICATION
  6. SEROQUEL [Concomitant]
  7. ADVAIR DISKUS 100/50 [Concomitant]
  8. ALBUTEROL [Concomitant]

REACTIONS (7)
  - DRUG INEFFECTIVE [None]
  - FEELING ABNORMAL [None]
  - LIBIDO DISORDER [None]
  - MEDICATION ERROR [None]
  - NAUSEA [None]
  - NIGHTMARE [None]
  - SMOKER [None]
